FAERS Safety Report 7017661-3 (Version None)
Quarter: 2010Q3

REPORT INFORMATION
  Report Type: 
  Country: None (occurrence: None)
  Receive Date: 20100928
  Receipt Date: 20100917
  Transmission Date: 20110219
  Serious: Yes (Other)
  Sender: FDA-Public Use
  Company Number: US-PFIZER INC-2010118143

PATIENT
  Sex: Female
  Weight: 68 kg

DRUGS (7)
  1. INSPRA [Suspect]
     Indication: HYPERTENSION
     Dosage: 50 MG, 1X/DAY
     Route: 048
     Dates: start: 20060101, end: 20090101
  2. METOPROLOL [Concomitant]
     Indication: ATRIAL FIBRILLATION
     Dosage: 75 MG, 2X/DAY
  3. WARFARIN SODIUM [Concomitant]
     Indication: ATRIAL FIBRILLATION
     Dosage: 2 MG, 1X/DAY
  4. LISINOPRIL [Concomitant]
     Indication: HYPERTENSION
     Dosage: 5 MG, 1X/DAY
  5. CENTRUM SILVER [Concomitant]
     Dosage: UNK
  6. CALCIUM [Concomitant]
     Indication: OSTEOPOROSIS
     Dosage: 600 MG, UNK
  7. AMIODARONE [Concomitant]
     Dosage: UNK

REACTIONS (1)
  - CARDIAC PACEMAKER INSERTION [None]
